FAERS Safety Report 8037172 (Version 3)
Quarter: 2013Q2

REPORT INFORMATION
  Report Type: Spontaneous
  Country: US (occurrence: None)
  Receive Date: 20110707
  Receipt Date: 20120705
  Transmission Date: 20140414
  Serious: Yes (Other)
  Sender: FDA-Public Use
  Company Number: US-CYPR-2011-000021

PATIENT
  Age: 64 Year
  Sex: Male
  Weight: 91.17 kg

DRUGS (23)
  1. CLOPIDOGREL [Suspect]
     Indication: ANTIPLATELET THERAPY
     Dosage: (75 MG QD ORAL), (75 MG QD ORAL)
     Route: 048
     Dates: start: 20110303, end: 20110506
  2. ASPIRIN [Suspect]
     Indication: CORONARY ARTERY DISEASE
     Dosage: (325 MG 325X/DAY ORAL)
     Route: 048
     Dates: start: 2000, end: 20110930
  3. METOPROLOL SUCCINATE [Concomitant]
  4. FISH OIL [Concomitant]
  5. RANITIDINE [Concomitant]
  6. LISINOPRIL [Concomitant]
  7. PRAVASTATIN [Concomitant]
  8. CENTRUM SILVER [Concomitant]
  9. CALCIUM [Concomitant]
  10. VITAMIN E [Concomitant]
  11. ASCORBIC ACID [Concomitant]
  12. NIACIN [Concomitant]
  13. VASOTEC [Concomitant]
  14. LASIX [Concomitant]
  15. XANAX [Concomitant]
  16. AMBIEN [Concomitant]
  17. PENTOXIFYLLINE [Concomitant]
  18. FLOMAX [Concomitant]
  19. POTASSIUM CHLORIDE [Concomitant]
  20. BACTRIM [Concomitant]
  21. CIPRO [Concomitant]
  22. ISOSORBIDE [Concomitant]
  23. CYPHER STENT [Concomitant]

REACTIONS (1)
  - PROSTATE CANCER RECURRENT [None]
